FAERS Safety Report 13677110 (Version 1)
Quarter: 2017Q2

REPORT INFORMATION
  Report Type: Report from Study
  Country: US (occurrence: US)
  Receive Date: 20170622
  Receipt Date: 20170622
  Transmission Date: 20170830
  Serious: Yes (Other)
  Sender: FDA-Public Use
  Company Number: US-ROCHE-1954230

PATIENT

DRUGS (3)
  1. ARGATROBAN. [Suspect]
     Active Substance: ARGATROBAN
     Indication: ISCHAEMIC STROKE
     Dosage: OVER 3 TO 5 MINUTES (WITHIN 1 HOUR OF THE ALTEPLASE THERAPY)
     Route: 040
  2. ARGATROBAN. [Suspect]
     Active Substance: ARGATROBAN
     Dosage: PER MIN FOR 48 HOURS (LOW DOSE)
     Route: 042
  3. ALTEPLASE [Suspect]
     Active Substance: ALTEPLASE
     Indication: ISCHAEMIC STROKE
     Dosage: 0.9 MG/KG; MAXIMUM DOSE 90 MG, 10% ADMINISTERED AS 1-MINUTE BOLUS, THE REMAINING INFUSED OVER 1 HOUR
     Route: 042

REACTIONS (1)
  - Gastrointestinal disorder [Unknown]
